FAERS Safety Report 16338871 (Version 1)
Quarter: 2019Q2

REPORT INFORMATION
  Report Type: Spontaneous
  Country: IR (occurrence: IR)
  Receive Date: 20190521
  Receipt Date: 20190521
  Transmission Date: 20190711
  Serious: Yes (Other)
  Sender: FDA-Public Use
  Company Number: PHHY2019IR111620

PATIENT
  Sex: Female

DRUGS (1)
  1. METHOTREXATE. [Suspect]
     Active Substance: METHOTREXATE
     Indication: ECTOPIC PREGNANCY
     Dosage: 50 MG/M2, SINGLE DOSE
     Route: 030

REACTIONS (3)
  - Product use in unapproved indication [Unknown]
  - Treatment failure [Unknown]
  - Tubal rupture [Unknown]
